FAERS Safety Report 7426274-0 (Version None)
Quarter: 2011Q2

REPORT INFORMATION
  Report Type: 
  Country: None (occurrence: None)
  Receive Date: 20110420
  Receipt Date: 20110414
  Transmission Date: 20111010
  Serious: Yes (Hospitalization)
  Sender: FDA-Public Use
  Company Number: A0903080A

PATIENT
  Age: 58 Year
  Sex: Female
  Weight: 86.4 kg

DRUGS (6)
  1. ACCUPRIL [Concomitant]
  2. AVANDIA [Suspect]
     Indication: DIABETES MELLITUS
     Dosage: 8MG PER DAY
     Route: 048
     Dates: start: 20020101, end: 20070627
  3. TOPROL-XL [Concomitant]
  4. ZOLOFT [Concomitant]
  5. MICRONASE [Concomitant]
  6. ZETIA [Concomitant]

REACTIONS (5)
  - CORONARY ARTERY DISEASE [None]
  - CAROTID ARTERY STENOSIS [None]
  - TRANSIENT ISCHAEMIC ATTACK [None]
  - CEREBROVASCULAR ACCIDENT [None]
  - CARDIOVASCULAR DISORDER [None]
